FAERS Safety Report 13213737 (Version 3)
Quarter: 2017Q3

REPORT INFORMATION
  Report Type: Report from Study
  Country: DE (occurrence: DE)
  Receive Date: 20170210
  Receipt Date: 20170807
  Transmission Date: 20171127
  Serious: Yes (Other)
  Sender: FDA-Public Use
  Company Number: DE-OTSUKA-2016_022799

PATIENT
  Sex: Male
  Weight: 82 kg

DRUGS (12)
  1. DECOSTRIOL [Concomitant]
     Active Substance: CALCITRIOL
     Indication: VITAMIN D DEFICIENCY
     Dosage: 0.25 ?G, QOD
     Route: 048
     Dates: start: 2011
  2. TOLVAPTAN [Suspect]
     Active Substance: TOLVAPTAN
     Dosage: 30 MG, QD (IN THE EVENING)
     Route: 048
     Dates: start: 20151203, end: 20151206
  3. TOLVAPTAN [Suspect]
     Active Substance: TOLVAPTAN
     Dosage: 15 MG, QD (IN THE EVENING)
     Route: 048
     Dates: start: 20151130, end: 20151202
  4. TOLVAPTAN [Suspect]
     Active Substance: TOLVAPTAN
     Dosage: 90 MG, QD (IN MORNING)
     Route: 048
     Dates: start: 20160106, end: 20160208
  5. TOLVAPTAN [Suspect]
     Active Substance: TOLVAPTAN
     Dosage: 30 MG, QD (IN EVENING)
     Route: 048
     Dates: start: 20160106, end: 20160208
  6. TOLVAPTAN [Suspect]
     Active Substance: TOLVAPTAN
     Indication: CONGENITAL CYSTIC KIDNEY DISEASE
     Dosage: 45 MG, QD (IN THE MORNING)
     Route: 048
     Dates: start: 20160315, end: 20160510
  7. TOLVAPTAN [Suspect]
     Active Substance: TOLVAPTAN
     Dosage: 15 MG, QD (IN THE EVENING)
     Route: 048
     Dates: start: 20160315, end: 20160510
  8. TOLVAPTAN [Suspect]
     Active Substance: TOLVAPTAN
     Dosage: 45 MG, QD (IN THE MORNING)
     Route: 048
     Dates: start: 20151130, end: 20151202
  9. TOLVAPTAN [Suspect]
     Active Substance: TOLVAPTAN
     Dosage: 30 MG, QD (IN THE MORNING)
     Route: 048
     Dates: start: 20151126, end: 20151129
  10. TOLVAPTAN [Suspect]
     Active Substance: TOLVAPTAN
     Dosage: 60 MG, QD (IN THE MORNING)
     Route: 048
     Dates: start: 20151203, end: 20151206
  11. TOLVAPTAN [Suspect]
     Active Substance: TOLVAPTAN
     Dosage: 15 MG, QD (IN THE EVENING)
     Route: 048
     Dates: start: 20151126, end: 20151129
  12. ATACAND [Concomitant]
     Active Substance: CANDESARTAN CILEXETIL
     Indication: HYPERTENSION
     Dosage: 16 MG, 1-0-1/2
     Route: 048
     Dates: start: 20130213

REACTIONS (1)
  - Alanine aminotransferase increased [Recovered/Resolved]

NARRATIVE: CASE EVENT DATE: 20160503
